FAERS Safety Report 5847597-2 (Version None)
Quarter: 2008Q3

REPORT INFORMATION
  Report Type: 
  Country: None (occurrence: None)
  Receive Date: 20080818
  Receipt Date: 20080812
  Transmission Date: 20090109
  Serious: Yes (Other)
  Sender: FDA-Public Use
  Company Number: DZ-SP-2008-02596

PATIENT
  Age: 63 Year
  Sex: Male

DRUGS (1)
  1. BCG  THERAPEUTICS [Suspect]
     Indication: BLADDER CANCER
     Route: 065

REACTIONS (3)
  - CYSTITIS [None]
  - HAEMATURIA [None]
  - TUBERCULOSIS BLADDER [None]
